FAERS Safety Report 4417480-8 (Version None)
Quarter: 2004Q3

REPORT INFORMATION
  Report Type: 
  Country: None (occurrence: None)
  Receive Date: 20040804
  Receipt Date: 20040723
  Transmission Date: 20050211
  Serious: Yes (Other)
  Sender: FDA-Public Use
  Company Number: 2004050070

PATIENT
  Age: 43 Year
  Sex: Male
  Weight: 127.0072 kg

DRUGS (3)
  1. BEN-GAY ULTRA (CAMPHOR, MENTHOL, METHYL SALICYLATE) [Suspect]
     Indication: BACK PAIN
     Dosage: ENOUGH TO COVER AREA DAILY, TOPICAL
     Route: 061
  2. BENGAY PAIN RELIEVING PATCH (MENTHOL) [Suspect]
     Indication: BACK PAIN
     Dosage: 1 TO 2 PATCHES DAILY, TRANSDERMAL
     Route: 062
  3. ANTIINFLAMMATORY/ANTIRHEUMATIC PRODUCTS (ANTIINFLAMMATORY/ANTIRHEUMATI [Concomitant]

REACTIONS (4)
  - BRAIN NEOPLASM [None]
  - HIP ARTHROPLASTY [None]
  - SENSORY LOSS [None]
  - SPINAL FRACTURE [None]
